FAERS Safety Report 15900794 (Version 1)
Quarter: 2019Q1

REPORT INFORMATION
  Report Type: Spontaneous
  Country: US (occurrence: US)
  Receive Date: 20190201
  Receipt Date: 20190201
  Transmission Date: 20190417
  Serious: No
  Sender: FDA-Public Use
  Company Number: US-GILEAD-2019-0388317

PATIENT
  Age: 78 Year
  Sex: Female

DRUGS (16)
  1. LISINOPRIL. [Concomitant]
     Active Substance: LISINOPRIL
  2. LEVOTHYROXIN [Concomitant]
     Active Substance: LEVOTHYROXINE
  3. VITAMIN C [Concomitant]
     Active Substance: ASCORBIC ACID
  4. VITAMIN D3 [Concomitant]
     Active Substance: CHOLECALCIFEROL
  5. IRON [Concomitant]
     Active Substance: IRON
  6. ASPIRIN (E.C.) [Concomitant]
     Active Substance: ASPIRIN
  7. LASIX + K [Concomitant]
     Active Substance: FUROSEMIDE\POTASSIUM CHLORIDE
  8. POTASSIUM CHLORIDE. [Concomitant]
     Active Substance: POTASSIUM CHLORIDE
  9. ZYRTEC R [Concomitant]
     Active Substance: CETIRIZINE HYDROCHLORIDE
  10. ADVIL 12HOUR [Concomitant]
     Active Substance: IBUPROFEN
  11. TYLENOL 8HR [Concomitant]
     Active Substance: ACETAMINOPHEN
  12. ATENOLOL. [Concomitant]
     Active Substance: ATENOLOL
  13. PREMARIN [Concomitant]
     Active Substance: ESTROGENS, CONJUGATED
  14. EPCLUSA [Suspect]
     Active Substance: SOFOSBUVIR\VELPATASVIR
     Indication: PRODUCT USED FOR UNKNOWN INDICATION
     Dosage: UNK
     Route: 065
     Dates: start: 201812, end: 20190130
  15. DIGOXIN. [Concomitant]
     Active Substance: DIGOXIN
  16. CALCIUM [Concomitant]
     Active Substance: CALCIUM

REACTIONS (1)
  - Swelling [Not Recovered/Not Resolved]
